FAERS Safety Report 13205347 (Version 1)
Quarter: 2017Q1

REPORT INFORMATION
  Report Type: Report from Study
  Country: CA (occurrence: CA)
  Receive Date: 20170209
  Receipt Date: 20170209
  Transmission Date: 20170428
  Serious: Yes (Other)
  Sender: FDA-Public Use
  Company Number: CA-JNJFOC-20161216871

PATIENT
  Age: 22 Year
  Sex: Female
  Weight: 48.1 kg

DRUGS (1)
  1. SIMPONI [Suspect]
     Active Substance: GOLIMUMAB
     Indication: CROHN^S DISEASE
     Route: 042
     Dates: start: 20161008

REACTIONS (8)
  - Haematochezia [Not Recovered/Not Resolved]
  - Diarrhoea [Unknown]
  - Pallor [Unknown]
  - Frequent bowel movements [Unknown]
  - Viral infection [Unknown]
  - Abdominal pain [Unknown]
  - Off label use [Unknown]
  - Product use issue [Unknown]

NARRATIVE: CASE EVENT DATE: 20161215
